FAERS Safety Report 17722035 (Version 1)
Quarter: 2020Q2

REPORT INFORMATION
  Report Type: Report from Study
  Country: IT (occurrence: IT)
  Receive Date: 20200429
  Receipt Date: 20200429
  Transmission Date: 20200714
  Serious: Yes (Hospitalization)
  Sender: FDA-Public Use
  Company Number: IT-TEVA-2020-IT-1230459

PATIENT
  Age: 75 Year
  Sex: Male

DRUGS (8)
  1. LANOXIN [Concomitant]
     Active Substance: DIGOXIN
     Route: 048
  2. ENTRESTO [Concomitant]
     Active Substance: SACUBITRIL\VALSARTAN
     Dosage: 2 DOSAGE FORMS
     Route: 048
  3. RANEXA 750 MG PROLONGED-RELEASE TABLETS [Concomitant]
     Dosage: 2 DOSAGE FORMS
     Route: 048
  4. CARDIOASPIRIN [Concomitant]
     Active Substance: ASPIRIN
     Route: 048
  5. BISOPROLOL FUMARATE. [Concomitant]
     Active Substance: BISOPROLOL FUMARATE
     Dosage: 2.5 MG
     Route: 048
  6. ELIQUIS [Concomitant]
     Active Substance: APIXABAN
     Dosage: 2 DOSAGE FORMS
     Route: 048
  7. LASIX [Concomitant]
     Active Substance: FUROSEMIDE
     Dosage: 2 DOSAGE FORMS
     Route: 048
  8. TAMSULOSIN [Suspect]
     Active Substance: TAMSULOSIN
     Indication: BENIGN PROSTATIC HYPERPLASIA
     Dosage: 2 DOSAGE FORMS
     Route: 048
     Dates: start: 20191212, end: 20191213

REACTIONS (1)
  - Syncope [Recovered/Resolved]

NARRATIVE: CASE EVENT DATE: 20191213
